FAERS Safety Report 9454171 (Version 3)
Quarter: 2013Q4

REPORT INFORMATION
  Report Type: Spontaneous
  Country: US (occurrence: None)
  Receive Date: 20130807
  Receipt Date: 20131219
  Transmission Date: 20140711
  Serious: Yes (Hospitalization, Congenital Anomaly)
  Sender: FDA-Public Use
  Company Number: SYM-2013-07590

PATIENT
  Age: 0 Day
  Sex: Female

DRUGS (1)
  1. WELLBUTRIN XL [Suspect]
     Indication: PRODUCT USED FOR UNKNOWN INDICATION
     Dosage: 150 MG, TRANSPLACENTAL
     Route: 064

REACTIONS (3)
  - Atrial septal defect [None]
  - Foetal exposure during pregnancy [None]
  - Maternal drugs affecting foetus [None]
